FAERS Safety Report 6702665-8 (Version None)
Quarter: 2010Q2

REPORT INFORMATION
  Report Type: 
  Country: None (occurrence: None)
  Receive Date: 20100429
  Receipt Date: 20100415
  Transmission Date: 20101027
  Serious: Yes (Hospitalization)
  Sender: FDA-Public Use
  Company Number: DE-MYLANLABS-2010S1006507

PATIENT
  Age: 56 Year
  Sex: Female
  Weight: 67 kg

DRUGS (6)
  1. TRAMADOL HCL [Suspect]
     Indication: INTERVERTEBRAL DISC PROTRUSION
     Dosage: DAILY DOSE: 2 DF DOSAGE FORM EVERY DAYS
     Dates: start: 20090525, end: 20090529
  2. TRAMADOL HCL [Suspect]
     Dosage: DAILY DOSE: 0.5 DF DOSAGE FORM EVERY DAYS
     Dates: start: 20090629, end: 20090704
  3. KATADOLON /00890102/ [Suspect]
     Indication: DRUG USE FOR UNKNOWN INDICATION
     Dosage: DAILY DOSE: 1 DF DOSAGE FORM EVERY DAYS
     Dates: start: 20090525, end: 20090529
  4. TRANCOLON [Suspect]
     Indication: DRUG USE FOR UNKNOWN INDICATION
     Dosage: DAILY DOSE: 1 DF DOSAGE FORM EVERY DAYS
     Dates: start: 20090629, end: 20090704
  5. TRANCOLON [Concomitant]
     Dosage: 2-3X/WEEK
     Dates: start: 20090629, end: 20100101
  6. METOPROLOL SUCCINATE [Concomitant]
     Indication: DRUG USE FOR UNKNOWN INDICATION
     Dosage: DAILY DOSE: 2 DF DOSAGE FORM EVERY DAYS

REACTIONS (1)
  - HEPATOTOXICITY [None]
